FAERS Safety Report 18532848 (Version 1)
Quarter: 2020Q4

REPORT INFORMATION
  Report Type: Spontaneous
  Country: CN (occurrence: CN)
  Receive Date: 20201123
  Receipt Date: 20201123
  Transmission Date: 20210114
  Serious: Yes (Other)
  Sender: FDA-Public Use
  Company Number: CN-JNJFOC-20201124437

PATIENT
  Age: 49 Year
  Sex: Male

DRUGS (16)
  1. ACETYLSALICYLIC ACID [Interacting]
     Active Substance: ASPIRIN
     Dosage: 100 MG, QD
     Route: 048
     Dates: start: 201910, end: 20191026
  2. CLOPIDOGREL HYDROGEN SULFATE [Interacting]
     Active Substance: CLOPIDOGREL BISULFATE
     Indication: ANTIPLATELET THERAPY
     Dosage: 300 MG
     Route: 048
     Dates: start: 20191024, end: 201910
  3. DEXAMETHASONE. [Concomitant]
     Active Substance: DEXAMETHASONE
     Dosage: 10 MG
     Route: 042
     Dates: start: 20191024
  4. IBUPROFEN. [Concomitant]
     Active Substance: IBUPROFEN
     Indication: SYMPTOMATIC TREATMENT
  5. PIPERACILLIN SODIUM W/SULBACTAM SODIUM [Concomitant]
     Active Substance: PIPERACILLIN SODIUM\SULBACTAM SODIUM
     Indication: ANTI-INFECTIVE THERAPY
  6. RIVAROXABAN [Suspect]
     Active Substance: RIVAROXABAN
     Indication: THROMBOSIS PROPHYLAXIS
     Dosage: 20 MG, QD
     Route: 048
     Dates: start: 20191027, end: 20191201
  7. HEPARIN [Interacting]
     Active Substance: HEPARIN SODIUM
     Indication: PRODUCT USED FOR UNKNOWN INDICATION
     Dosage: 2000 U, ONCE
     Route: 065
     Dates: start: 20191024, end: 20191024
  8. TIROFIBAN [Interacting]
     Active Substance: TIROFIBAN
     Indication: ANTIPLATELET THERAPY
     Dosage: 0.3 MG/H, INTRAVENOUS PUMP
     Route: 065
     Dates: start: 20191024, end: 20191025
  9. ACETYLSALICYLIC ACID [Interacting]
     Active Substance: ASPIRIN
     Indication: ANTIPLATELET THERAPY
     Dosage: 300 MG
     Route: 048
     Dates: start: 20191024, end: 201910
  10. CLOPIDOGREL HYDROGEN SULFATE [Interacting]
     Active Substance: CLOPIDOGREL BISULFATE
     Dosage: 75 MG, QD
     Route: 048
     Dates: start: 201910, end: 20191026
  11. DALTEPARIN SODIUM [Interacting]
     Active Substance: DALTEPARIN SODIUM
     Indication: ANTICOAGULANT THERAPY
     Dosage: 5000 IU
     Route: 058
     Dates: start: 20191024, end: 20191024
  12. HEPARIN [Interacting]
     Active Substance: HEPARIN SODIUM
     Dosage: 3000 U
     Route: 065
     Dates: start: 20191024, end: 20191024
  13. TICAGRELOR. [Interacting]
     Active Substance: TICAGRELOR
     Indication: ANTIPLATELET THERAPY
     Dosage: 180 MG, QD
     Route: 065
     Dates: start: 20191028
  14. BIVALIRUDIN. [Interacting]
     Active Substance: BIVALIRUDIN
     Indication: ANTICOAGULANT THERAPY
     Dosage: UNK
     Route: 065
     Dates: start: 201912
  15. ACETYLSALICYLIC ACID [Interacting]
     Active Substance: ASPIRIN
     Dosage: 100 MG, QD
     Route: 048
     Dates: start: 20191201
  16. DALTEPARIN SODIUM [Interacting]
     Active Substance: DALTEPARIN SODIUM
     Dosage: 5000 IU, AFTER SURGERY 3 HOURS
     Route: 058
     Dates: start: 20191024, end: 20191025

REACTIONS (4)
  - Heparin-induced thrombocytopenia [Recovered/Resolved]
  - Off label use [Unknown]
  - Contraindicated product administered [Unknown]
  - Labelled drug-drug interaction medication error [Unknown]

NARRATIVE: CASE EVENT DATE: 20191024
